FAERS Safety Report 6486660-2 (Version None)
Quarter: 2009Q4

REPORT INFORMATION
  Report Type: 
  Country: None (occurrence: None)
  Receive Date: 20091210
  Receipt Date: 20091204
  Transmission Date: 20100525
  Serious: Yes (Other)
  Sender: FDA-Public Use
  Company Number: CH-WYE-G05059809

PATIENT
  Age: 69 Year
  Sex: Female

DRUGS (1)
  1. EFFEXOR XR [Suspect]
     Dosage: FROM 75 MG UP TO 225 MG DAILY, ACTUAL DOSE 75 MG DAILY
     Dates: start: 20090701

REACTIONS (12)
  - DEPRESSED LEVEL OF CONSCIOUSNESS [None]
  - DIZZINESS [None]
  - DRUG INTOLERANCE [None]
  - DRY MOUTH [None]
  - DYSGEUSIA [None]
  - EYE DISORDER [None]
  - HEADACHE [None]
  - MYDRIASIS [None]
  - NAUSEA [None]
  - SOMNOLENCE [None]
  - TINNITUS [None]
  - VISUAL IMPAIRMENT [None]
